FAERS Safety Report 16276706 (Version 3)
Quarter: 2022Q2

REPORT INFORMATION
  Report Type: Spontaneous
  Country: FR (occurrence: FR)
  Receive Date: 20190506
  Receipt Date: 20220428
  Transmission Date: 20220721
  Serious: Yes (Death)
  Sender: FDA-Public Use
  Company Number: FR-PFIZER INC-2019187938

PATIENT
  Age: 48 Year
  Sex: Male

DRUGS (6)
  1. ATRACURIUM BESYLATE [Suspect]
     Active Substance: ATRACURIUM BESYLATE
     Dosage: UNK
  2. PROPOFOL [Suspect]
     Active Substance: PROPOFOL
     Dosage: UNK
  3. ALCOHOL [Concomitant]
     Active Substance: ALCOHOL
     Dosage: UNK
  4. ATRACURIUM [Concomitant]
     Active Substance: ATRACURIUM
     Dosage: UNK
  5. PAROXETINE [Concomitant]
     Active Substance: PAROXETINE
     Indication: Depression
     Dosage: UNK
  6. CISATRACURIUM [Concomitant]
     Active Substance: CISATRACURIUM
     Dosage: UNK

REACTIONS (1)
  - Completed suicide [Fatal]
